FAERS Safety Report 25828548 (Version 1)
Quarter: 2025Q3

REPORT INFORMATION
  Report Type: Spontaneous
  Country: EU (occurrence: EU)
  Receive Date: 20250922
  Receipt Date: 20250922
  Transmission Date: 20251021
  Serious: Yes (Hospitalization, Other)
  Sender: ACCORD
  Company Number: EU-Accord-505033

PATIENT
  Age: 70 Year
  Sex: Male

DRUGS (10)
  1. CARBOPLATIN [Suspect]
     Active Substance: CARBOPLATIN
     Indication: Non-small cell lung cancer stage IV
  2. PACLITAXEL [Suspect]
     Active Substance: PACLITAXEL
     Indication: Non-small cell lung cancer stage IV
  3. NELVUTAMIG [Suspect]
     Active Substance: NELVUTAMIG
     Indication: Non-small cell lung cancer stage IV
  4. NIVOLUMAB [Suspect]
     Active Substance: NIVOLUMAB
     Indication: Non-small cell lung cancer stage IV
  5. DENOSUMAB [Concomitant]
     Active Substance: DENOSUMAB
     Indication: Metastases to bone
  6. LEUPROLIDE ACETATE [Concomitant]
     Active Substance: LEUPROLIDE ACETATE
     Indication: Prostate cancer
  7. CARBOPLATIN [Suspect]
     Active Substance: CARBOPLATIN
     Indication: Prostate cancer
  8. PACLITAXEL [Suspect]
     Active Substance: PACLITAXEL
     Indication: Prostate cancer
  9. NIVOLUMAB [Suspect]
     Active Substance: NIVOLUMAB
     Indication: Prostate cancer
  10. NELVUTAMIG [Suspect]
     Active Substance: NELVUTAMIG
     Indication: Prostate cancer

REACTIONS (3)
  - Cholecystitis [Recovered/Resolved]
  - Hepatic enzyme increased [Recovered/Resolved]
  - Biliary dilatation [Recovered/Resolved]
